FAERS Safety Report 10642918 (Version 2)
Quarter: 2019Q1

REPORT INFORMATION
  Report Type: Spontaneous
  Country: FR (occurrence: FR)
  Receive Date: 20141210
  Receipt Date: 20190222
  Transmission Date: 20190417
  Serious: Yes (Hospitalization)
  Sender: FDA-Public Use
  Company Number: FR-SA-2014SA168337

PATIENT
  Age: 45 Year
  Sex: Female

DRUGS (11)
  1. IRBESARTAN. [Concomitant]
     Active Substance: IRBESARTAN
     Dosage: UNK
     Route: 048
  2. LERCANIDIPINE [Concomitant]
     Active Substance: LERCANIDIPINE
     Dosage: UNK
     Route: 048
  3. URAPIDIL [Concomitant]
     Active Substance: URAPIDIL
     Dosage: UNK
     Route: 048
  4. ALPRAZOLAM. [Concomitant]
     Active Substance: ALPRAZOLAM
     Dosage: UNK
     Route: 048
  5. METHOTREXATE. [Suspect]
     Active Substance: METHOTREXATE
     Indication: PSORIASIS
     Dosage: UNK
  6. METHOTREXATE. [Suspect]
     Active Substance: METHOTREXATE
     Dosage: UNK
     Dates: start: 20141107
  7. DAFALGAN [Concomitant]
     Active Substance: ACETAMINOPHEN
     Dosage: UNK
     Route: 048
  8. EBASTINE [Concomitant]
     Active Substance: EBASTINE
     Dosage: UNK
     Route: 048
  9. RIFINAH [Suspect]
     Active Substance: ISONIAZID\RIFAMPIN
     Indication: TUBERCULOSIS
     Dosage: UNK UNK,UNK
     Route: 048
     Dates: start: 20140914
  10. FLUDEX [INDAPAMIDE] [Concomitant]
     Active Substance: INDAPAMIDE
     Dosage: UNK
     Route: 048
  11. EUPANTOL [Concomitant]
     Active Substance: PANTOPRAZOLE SODIUM
     Dosage: UNK
     Route: 048

REACTIONS (1)
  - Psoriasis [Unknown]

NARRATIVE: CASE EVENT DATE: 20141114
